FAERS Safety Report 7716905-X (Version None)
Quarter: 2011Q3

REPORT INFORMATION
  Report Type: 
  Country: None (occurrence: None)
  Receive Date: 20110829
  Receipt Date: 20110826
  Transmission Date: 20111222
  Serious: Yes (Death, Hospitalization)
  Sender: FDA-Public Use
  Company Number: PHHY2011FR71193

PATIENT
  Sex: Male
  Weight: 80 kg

DRUGS (11)
  1. LYRICA [Concomitant]
  2. RAMIPRIL [Concomitant]
     Dosage: 2.5 MG, UNK
  3. NITROGLYCERIN [Concomitant]
     Dosage: 10 UKN, UNK
  4. LOPRESSOR [Concomitant]
     Dosage: 100 MG, UNK
  5. EVEROLIMUS [Suspect]
     Indication: RENAL CANCER
     Dosage: 10 MG, UNK
     Route: 048
     Dates: start: 20110501
  6. FUROSEMIDE [Concomitant]
  7. LXPRIM [Concomitant]
  8. UMULINE [Concomitant]
  9. PLAVIX [Concomitant]
  10. NEXIUM [Concomitant]
  11. ATORVASTATIN CALCIUM [Concomitant]
     Dosage: 40 MG, UNK

REACTIONS (2)
  - DYSPNOEA [None]
  - DEATH [None]
